FAERS Safety Report 8128787-5 (Version None)
Quarter: 2012Q1

REPORT INFORMATION
  Report Type: 
  Country: None (occurrence: None)
  Receive Date: 20120210
  Receipt Date: 20110223
  Transmission Date: 20120608
  Serious: No
  Sender: FDA-Public Use
  Company Number: US-BRISTOL-MYERS SQUIBB COMPANY-15566284

PATIENT
  Age: 40 Year
  Sex: Male
  Weight: 68 kg

DRUGS (7)
  1. PREDNISONE TAB [Concomitant]
  2. METHOTREXATE [Concomitant]
  3. FOLIC ACID [Concomitant]
  4. FERROUS SULFATE TAB [Concomitant]
  5. HYDROXYCHLOROQUINE SULFATE [Concomitant]
  6. VITAMIN D [Concomitant]
  7. ORENCIA [Suspect]
     Indication: RHEUMATOID ARTHRITIS
     Dosage: 1 DF: 4 VIALS OF 250MG EVERY INFUSION
     Dates: start: 20110101

REACTIONS (1)
  - DIARRHOEA [None]
